FAERS Safety Report 25796262 (Version 2)
Quarter: 2025Q4

REPORT INFORMATION
  Report Type: Report from Study
  Country: CA (occurrence: CA)
  Receive Date: 20250912
  Receipt Date: 20251009
  Transmission Date: 20260118
  Serious: Yes (Death)
  Sender: ABBVIE
  Company Number: CA-ABBVIE-6456262

PATIENT
  Sex: Male

DRUGS (7)
  1. LUPRON [Suspect]
     Active Substance: LEUPROLIDE ACETATE
     Indication: Prostate cancer
     Dosage: FORM STRENGTH 30 MG?DOSE FORM : POWDER AND SOLVENT FOR SUSPENSION FOR INJECTION IN PRE FILLED SYR...
     Route: 030
     Dates: start: 20240731
  2. RIVAROXABAN [Concomitant]
     Active Substance: RIVAROXABAN
     Indication: Product used for unknown indication
     Dosage: 1 TABLET DAILY IN MORNING
     Route: 048
  3. EZETIMIBE [Concomitant]
     Active Substance: EZETIMIBE
     Indication: Product used for unknown indication
     Route: 048
  4. Pms-sotalol [Concomitant]
     Indication: Product used for unknown indication
     Dosage: TWICE DAILY
  5. PRAVASTATIN SODIUM [Concomitant]
     Active Substance: PRAVASTATIN SODIUM
     Indication: Product used for unknown indication
     Dosage: 1 TABLET ONCE DAILY AT BEDTIME
  6. FLUAD NOS [Concomitant]
     Active Substance: INFLUENZA VIRUS VACCINE
     Indication: Product used for unknown indication
     Dosage: AS DIRECTED
     Route: 051
  7. Comirnaty [Concomitant]
     Indication: Product used for unknown indication
     Dosage: 30 MCG?AS NEEDED
     Route: 051

REACTIONS (1)
  - Prostate cancer metastatic [Fatal]
